FAERS Safety Report 13631443 (Version 1)
Quarter: 2017Q2

REPORT INFORMATION
  Report Type: Spontaneous
  Country: US (occurrence: US)
  Receive Date: 20170608
  Receipt Date: 20170608
  Transmission Date: 20170830
  Serious: No
  Sender: FDA-Public Use
  Company Number: US-BAYER-2017-105910

PATIENT
  Sex: Female
  Weight: 83.91 kg

DRUGS (2)
  1. ALEVE [Suspect]
     Active Substance: NAPROXEN SODIUM
     Dosage: UNK
     Route: 048
     Dates: start: 201611
  2. ADVIL [Suspect]
     Active Substance: IBUPROFEN
     Dosage: UNK UNK, QD
     Dates: start: 201703

REACTIONS (3)
  - Wrong technique in product usage process [Unknown]
  - Gastric disorder [None]
  - Incorrect drug administration duration [Unknown]
